FAERS Safety Report 4472045-7 (Version None)
Quarter: 2004Q4

REPORT INFORMATION
  Report Type: 
  Country: None (occurrence: None)
  Receive Date: 20041012
  Receipt Date: 20040930
  Transmission Date: 20050328
  Serious: Yes (Hospitalization)
  Sender: FDA-Public Use
  Company Number: 2004071925

PATIENT
  Sex: Male
  Weight: 71.2147 kg

DRUGS (4)
  1. ROLAIDS [Suspect]
     Indication: GASTROOESOPHAGEAL REFLUX DISEASE
     Dosage: 8-10 TABS PER DAY, ORAL
     Route: 048
     Dates: start: 19840101
  2. ACETYLSALICYLIC ACID SRT [Concomitant]
  3. ACETAMINOPHEN [Concomitant]
  4. ANTIFLATULENTS (ANTIFLATULENTS) [Concomitant]

REACTIONS (4)
  - BLOOD URINE [None]
  - GASTRIC ULCER [None]
  - HERNIA REPAIR [None]
  - JOINT SURGERY [None]
